FAERS Safety Report 8766070 (Version 1)
Quarter: 2012Q4

REPORT INFORMATION
  Report Type: 
  Country: RU (occurrence: RU)
  Receive Date: 20120904
  Receipt Date: 20120904
  Transmission Date: 20130627
  Serious: Yes (Other)
  Sender: FDA-Public Use
  Company Number: RU-ROCHE-1108518

PATIENT
  Age: 42 Year
  Sex: Female

DRUGS (1)
  1. MABTHERA [Suspect]
     Indication: RHEUMATOID ARTHRITIS
     Route: 065

REACTIONS (4)
  - Pancreatitis acute [Recovered/Resolved]
  - Cholecystitis chronic [Recovered/Resolved]
  - Gingivitis [Recovered/Resolved]
  - Pyrexia [Recovered/Resolved]
